FAERS Safety Report 22220664 (Version 1)
Quarter: 2023Q2

REPORT INFORMATION
  Report Type: Spontaneous
  Country: GR (occurrence: GR)
  Receive Date: 20230417
  Receipt Date: 20230417
  Transmission Date: 20230721
  Serious: Yes (Hospitalization)
  Sender: FDA-Public Use
  Company Number: GR-NOVOPROD-1049370

PATIENT
  Age: 74 Year
  Sex: Male

DRUGS (2)
  1. ACTRAPID [Suspect]
     Active Substance: INSULIN HUMAN
     Indication: Type 1 diabetes mellitus
     Dosage: AS NEEDED IU QD (DOSAGE NOT REPORTED)
     Route: 058
  2. MIXTARD HUMAN 70/30 [Suspect]
     Active Substance: INSULIN HUMAN
     Indication: Type 1 diabetes mellitus
     Dosage: AS NEEDED IU QD (DOSAGE NOT REPORTED)
     Route: 058

REACTIONS (3)
  - Diabetic gangrene [Not Recovered/Not Resolved]
  - Cardiac failure [Recovering/Resolving]
  - Angiopathy [Not Recovered/Not Resolved]
